FAERS Safety Report 7197622-4 (Version None)
Quarter: 2010Q4

REPORT INFORMATION
  Report Type: 
  Country: None (occurrence: None)
  Receive Date: 20101207
  Receipt Date: 20101129
  Transmission Date: 20110411
  Serious: Yes (Other)
  Sender: FDA-Public Use
  Company Number: 2010SP062657

PATIENT
  Sex: Female

DRUGS (3)
  1. RIBAVARIN [Suspect]
     Indication: HEPATITIS
  2. INTERFERON [Suspect]
     Indication: HEPATITIS
     Dosage: QW
  3. CREON [Suspect]
     Indication: GASTRITIS

REACTIONS (18)
  - BUNION [None]
  - CARDIOMEGALY [None]
  - CARPAL TUNNEL SYNDROME [None]
  - FLATULENCE [None]
  - GASTRITIS [None]
  - HEPATIC CIRRHOSIS [None]
  - HEPATOMEGALY [None]
  - HYPOAESTHESIA [None]
  - OEDEMA [None]
  - ORAL DISCOMFORT [None]
  - PAIN IN EXTREMITY [None]
  - PANCREATIC DISORDER [None]
  - PARAESTHESIA [None]
  - PLATELET COUNT DECREASED [None]
  - RED BLOOD CELL ABNORMALITY [None]
  - STOMATITIS [None]
  - VASODILATATION [None]
  - WHITE BLOOD CELL COUNT DECREASED [None]
